FAERS Safety Report 5025216-5 (Version None)
Quarter: 2006Q2

REPORT INFORMATION
  Report Type: 
  Country: None (occurrence: None)
  Receive Date: 20060609
  Receipt Date: 20060609
  Transmission Date: 20061013
  Serious: Yes (Other)
  Sender: FDA-Public Use
  Company Number: None

PATIENT
  Age: 60 Year
  Sex: Male
  Weight: 85.2762 kg

DRUGS (2)
  1. VYTORIN [Suspect]
     Indication: BLOOD CHOLESTEROL INCREASED
     Dosage: 1/2 TABLET Q EVENING PO
     Route: 048
     Dates: start: 20060425, end: 20060607
  2. VYTORIN [Suspect]
     Indication: BLOOD TRIGLYCERIDES INCREASED
     Dosage: 1/2 TABLET Q EVENING PO
     Route: 048
     Dates: start: 20060425, end: 20060607

REACTIONS (12)
  - APPETITE DISORDER [None]
  - ARTHRALGIA [None]
  - INFLAMMATION [None]
  - MOTOR DYSFUNCTION [None]
  - MUSCLE SPASMS [None]
  - MYALGIA [None]
  - NECK PAIN [None]
  - PAIN [None]
  - PAIN IN EXTREMITY [None]
  - SHOULDER PAIN [None]
  - SLEEP DISORDER [None]
  - SOCIAL PROBLEM [None]
